FAERS Safety Report 5875757-3 (Version None)
Quarter: 2008Q3

REPORT INFORMATION
  Report Type: 
  Country: None (occurrence: None)
  Receive Date: 20080905
  Receipt Date: 20080826
  Transmission Date: 20090109
  Serious: Yes (Hospitalization, Other)
  Sender: FDA-Public Use
  Company Number: GXKR2008IT08063

PATIENT
  Age: 42 Year
  Sex: Male

DRUGS (7)
  1. METHYLPREDNISOLONE (NGX) (METHYLPREDNISOLONE) UNKNOWN [Suspect]
     Indication: PROPHYLAXIS AGAINST TRANSPLANT REJECTION
     Dosage: 500 MG, ONCE/SINGLE; 200 MG, ONCE/SINGLE; 50 MG, ONCE/SINGLE
  2. PREDNISONE TAB [Suspect]
     Indication: PROPHYLAXIS AGAINST TRANSPLANT REJECTION
     Dosage: 25 MG, QD; 16 MG, QD
  3. CYCLOSPORINE [Suspect]
     Indication: PROPHYLAXIS AGAINST TRANSPLANT REJECTION
     Dosage: 300 MG, BID
  4. MYCOPHENOLATE MOFETIL [Suspect]
     Indication: PROPHYLAXIS AGAINST TRANSPLANT REJECTION
     Dosage: 1 G, QD; 2 G, QD
  5. BASILIXIMAB (BASILIXIMAB) [Suspect]
     Indication: PROPHYLAXIS AGAINST TRANSPLANT REJECTION
     Dosage: INTRAVENOUS
     Route: 042
  6. TACROLIMUS [Suspect]
     Indication: PROPHYLAXIS AGAINST TRANSPLANT REJECTION
  7. STEROIDS NOS (NO INGREDIENTS/SUBSTANCES) [Suspect]
     Indication: PROPHYLAXIS AGAINST TRANSPLANT REJECTION
     Dosage: 250 MG, ONCE/SINGLE

REACTIONS (7)
  - BK VIRUS INFECTION [None]
  - BLOOD CREATININE INCREASED [None]
  - HEPATOTOXICITY [None]
  - KIDNEY FIBROSIS [None]
  - POLYOMAVIRUS-ASSOCIATED NEPHROPATHY [None]
  - RENAL FAILURE [None]
  - RENAL TUBULAR ATROPHY [None]
